FAERS Safety Report 24338679 (Version 1)
Quarter: 2024Q3

REPORT INFORMATION
  Report Type: Spontaneous
  Country: US (occurrence: None)
  Receive Date: 20240918
  Receipt Date: 20240918
  Transmission Date: 20241017
  Serious: Yes (Hospitalization)
  Sender: Public
  Company Number: None

PATIENT
  Age: 53 Year
  Sex: Female

DRUGS (2)
  1. HUMIRA [Suspect]
     Active Substance: ADALIMUMAB
  2. OZEMPIC [Concomitant]
     Dosage: FREQUENCY : EVERY OTHER WEEK;?

REACTIONS (9)
  - Kidney infection [None]
  - Nephrolithiasis [None]
  - Fall [None]
  - Jaw fracture [None]
  - Therapy interrupted [None]
  - Pain [None]
  - Arthralgia [None]
  - Back pain [None]
  - Nausea [None]
